FAERS Safety Report 12917476 (Version 2)
Quarter: 2017Q1

REPORT INFORMATION
  Report Type: Spontaneous
  Country: PT (occurrence: PT)
  Receive Date: 20161107
  Receipt Date: 20170125
  Transmission Date: 20170428
  Serious: Yes (Other)
  Sender: FDA-Public Use
  Company Number: PT-ROCHE-1847777

PATIENT
  Age: 56 Year
  Sex: Female

DRUGS (11)
  1. TRASTUZUMAB [Suspect]
     Active Substance: TRASTUZUMAB
     Dosage: START DATE:/NOV/2011?STOP DATE: /APR/2012
     Route: 065
  2. PACLITAXEL. [Suspect]
     Active Substance: PACLITAXEL
     Indication: INVASIVE DUCTAL BREAST CARCINOMA
     Dosage: 12 CYCLES
     Route: 065
  3. EXEMESTANE. [Suspect]
     Active Substance: EXEMESTANE
     Indication: INVASIVE DUCTAL BREAST CARCINOMA
     Dosage: START DATE: /MAY/2013?STOP DATE: /SEP/2013
     Route: 065
  4. TRASTUZUMAB [Suspect]
     Active Substance: TRASTUZUMAB
     Dosage: START DATE: /MAY/2013?STOP DATE: /SEP/2013
     Route: 065
  5. DOXORUBICINE [Suspect]
     Active Substance: DOXORUBICIN
     Indication: INVASIVE DUCTAL BREAST CARCINOMA
     Dosage: 4 CYCLES
     Route: 065
  6. TRASTUZUMAB [Suspect]
     Active Substance: TRASTUZUMAB
     Indication: INVASIVE DUCTAL BREAST CARCINOMA
     Dosage: START DATE: /APR/2011
     Route: 065
  7. LETROZOL [Suspect]
     Active Substance: LETROZOLE
     Indication: INVASIVE DUCTAL BREAST CARCINOMA
     Route: 065
  8. CYCLOPHOSPHAMIDE. [Suspect]
     Active Substance: CYCLOPHOSPHAMIDE
     Indication: INVASIVE DUCTAL BREAST CARCINOMA
     Dosage: 4 CYCLES
     Route: 065
  9. VINORELBINE [Suspect]
     Active Substance: VINORELBINE\VINORELBINE TARTRATE
     Indication: INVASIVE DUCTAL BREAST CARCINOMA
     Dosage: START DATE: /AUG/2012?STOP DATE: /MAY/2013
     Route: 065
  10. TRASTUZUMAB [Suspect]
     Active Substance: TRASTUZUMAB
     Dosage: START DATE:/AUG/2012?STOP DATE: /MAY/2013
     Route: 065
  11. CAPECITABINE. [Suspect]
     Active Substance: CAPECITABINE
     Indication: INVASIVE DUCTAL BREAST CARCINOMA
     Dosage: START DATE: /NOV/2011?STOP DATE: /APR/2012
     Route: 065

REACTIONS (6)
  - Nodule [Unknown]
  - Off label use [Unknown]
  - Jaundice cholestatic [Unknown]
  - Gastrointestinal disorder [Unknown]
  - Palmar-plantar erythrodysaesthesia syndrome [Unknown]
  - Lymphadenopathy [Unknown]

NARRATIVE: CASE EVENT DATE: 201305
